FAERS Safety Report 15731352 (Version 1)
Quarter: 2018Q4

REPORT INFORMATION
  Report Type: Spontaneous
  Country: US (occurrence: US)
  Receive Date: 20181217
  Receipt Date: 20181217
  Transmission Date: 20190205
  Serious: Yes (Hospitalization)
  Sender: FDA-Public Use
  Company Number: US-UNITED THERAPEUTICS-UNT-2018-020251

PATIENT
  Sex: Male
  Weight: 95.69 kg

DRUGS (1)
  1. REMODULIN [Suspect]
     Active Substance: TREPROSTINIL
     Indication: PULMONARY ARTERIAL HYPERTENSION
     Dosage: 0.010 ?G/KG, CONTINUING
     Route: 058
     Dates: start: 20181116

REACTIONS (5)
  - Fluid retention [Unknown]
  - Syncope [Unknown]
  - Fear [Unknown]
  - Fluid overload [Unknown]
  - Anxiety [Unknown]

NARRATIVE: CASE EVENT DATE: 2018
